FAERS Safety Report 6072185-5 (Version None)
Quarter: 2009Q1

REPORT INFORMATION
  Report Type: 
  Country: None (occurrence: None)
  Receive Date: 20090205
  Receipt Date: 20090205
  Transmission Date: 20090719
  Serious: Yes (Hospitalization)
  Sender: FDA-Public Use
  Company Number: None

PATIENT
  Age: 47 Year
  Sex: Female
  Weight: 55 kg

DRUGS (7)
  1. TRUVADA [Suspect]
     Indication: HIV INFECTION
     Dosage: 200/300 MG QD ORALLY
     Route: 048
     Dates: start: 20081205, end: 20081227
  2. EFAVIRENZ [Suspect]
     Indication: HIV INFECTION
     Dosage: 600 MG QD ORALLY
     Route: 048
     Dates: start: 20081205, end: 20081227
  3. COTRIMOXAZOLE [Concomitant]
  4. RIFAMPICIN [Concomitant]
  5. ISONIAZID [Concomitant]
  6. ETHAMBUTOL HYDROCHLORIDE [Concomitant]
  7. PYRAZINAMIDE [Concomitant]

REACTIONS (19)
  - BLOOD ALBUMIN DECREASED [None]
  - BLOOD CREATINE INCREASED [None]
  - BLOOD POTASSIUM INCREASED [None]
  - BLOOD SODIUM DECREASED [None]
  - DIARRHOEA [None]
  - HAEMATOCRIT DECREASED [None]
  - HAEMOGLOBIN DECREASED [None]
  - HEPATIC ENCEPHALOPATHY [None]
  - HEPATITIS [None]
  - HEPATOMEGALY [None]
  - INCOHERENT [None]
  - JAUNDICE [None]
  - MALAISE [None]
  - PALLOR [None]
  - PLATELET COUNT INCREASED [None]
  - PRURITUS [None]
  - PYREXIA [None]
  - RENAL IMPAIRMENT [None]
  - VOMITING [None]
